FAERS Safety Report 17352270 (Version 2)
Quarter: 2020Q1

REPORT INFORMATION
  Report Type: Report from Study
  Country: CA (occurrence: CA)
  Receive Date: 20200130
  Receipt Date: 20200202
  Transmission Date: 20200409
  Serious: Yes (Other)
  Sender: FDA-Public Use
  Company Number: CA-BEH-2020112156

PATIENT
  Age: 28 Year
  Sex: Female
  Weight: 58 kg

DRUGS (4)
  1. BERINERT [Suspect]
     Active Substance: HUMAN C1-ESTERASE INHIBITOR
     Indication: HEREDITARY ANGIOEDEMA WITH C1 ESTERASE INHIBITOR DEFICIENCY
     Dosage: 3000 INTERNATIONAL UNIT, BIW
     Route: 058
     Dates: start: 20200120
  2. BERINERT [Suspect]
     Active Substance: HUMAN C1-ESTERASE INHIBITOR
     Indication: HEREDITARY ANGIOEDEMA WITH C1 ESTERASE INHIBITOR DEFICIENCY
     Dosage: 3000 INTERNATIONAL UNIT, BIW
     Route: 058
     Dates: start: 20200120
  3. BERINERT [Suspect]
     Active Substance: HUMAN C1-ESTERASE INHIBITOR
     Indication: PROPHYLAXIS
     Dosage: 1500 INTERNATIONAL UNIT, PRN
     Route: 042
     Dates: start: 20200120
  4. BERINERT [Suspect]
     Active Substance: HUMAN C1-ESTERASE INHIBITOR
     Indication: PROPHYLAXIS
     Dosage: 1500 INTERNATIONAL UNIT, PRN
     Route: 042
     Dates: start: 20200120

REACTIONS (6)
  - Intentional product use issue [Unknown]
  - Hereditary angioedema [Not Recovered/Not Resolved]
  - Therapeutic product effect incomplete [Not Recovered/Not Resolved]
  - No adverse event [Unknown]
  - Off label use [Unknown]
  - Hereditary angioedema [Not Recovered/Not Resolved]

NARRATIVE: CASE EVENT DATE: 20200120
